FAERS Safety Report 7002095-8 (Version None)
Quarter: 2010Q3

REPORT INFORMATION
  Report Type: 
  Country: None (occurrence: None)
  Receive Date: 20100920
  Receipt Date: 20100604
  Transmission Date: 20110219
  Serious: No
  Sender: FDA-Public Use
  Company Number: US-ASTRAZENECA-2010SE27836

PATIENT
  Age: 17623 Day
  Sex: Male
  Weight: 82.6 kg

DRUGS (8)
  1. SEROQUEL [Suspect]
     Route: 048
     Dates: start: 20020103
  2. LITHIUM [Concomitant]
     Dates: start: 20020103
  3. LITHIUM [Concomitant]
     Dates: start: 20041109
  4. HALOPERIDOL [Concomitant]
     Dates: start: 20020103
  5. HALOPERIDOL [Concomitant]
     Dates: start: 20041109
  6. PROPRANOLOL [Concomitant]
     Dates: start: 20020103
  7. PROPRANOLOL [Concomitant]
     Dates: start: 20041109
  8. TRAZODONE HCL [Concomitant]
     Dates: start: 20041109

REACTIONS (4)
  - BIPOLAR DISORDER [None]
  - CHRONIC OBSTRUCTIVE PULMONARY DISEASE [None]
  - DIABETES MELLITUS [None]
  - TOBACCO ABUSE [None]
